FAERS Safety Report 8778769 (Version 1)
Quarter: 2012Q4

REPORT INFORMATION
  Report Type: 
  Country: US (occurrence: US)
  Receive Date: 20120913
  Receipt Date: 20120913
  Transmission Date: 20130627
  Serious: Yes (Hospitalization, Other)
  Sender: FDA-Public Use
  Company Number: US-TEVA-357996USA

PATIENT
  Sex: Female

DRUGS (7)
  1. BUDESONIDE [Suspect]
     Dosage: 15 mcg; 0.5 DF TID inhalation; DF TID inhalation
     Dates: start: 2011, end: 20120803
  2. BROVANA [Suspect]
     Indication: BRONCHIECTASIS
     Dosage: inhalation; dose decreased
  3. LEVOSALBUTAMOL [Suspect]
     Indication: BRONCHIECTASIS
     Dosage: 0.5 DF inhalation; 0.63 mg TID inhalation
     Dates: start: 201208
  4. PREDNISONE [Concomitant]
  5. ALPRAZOLAM [Concomitant]
  6. FEXOFENADINE [Concomitant]
  7. TIOTROPIUM BROMIDE [Concomitant]

REACTIONS (5)
  - Drug ineffective [Unknown]
  - Thymoma malignant recurrent [Unknown]
  - Dyspnoea [Not Recovered/Not Resolved]
  - Tremor [Not Recovered/Not Resolved]
  - Insomnia [Unknown]
